FAERS Safety Report 6403978-X (Version None)
Quarter: 2009Q4

REPORT INFORMATION
  Report Type: 
  Country: None (occurrence: None)
  Receive Date: 20091016
  Receipt Date: 20090713
  Transmission Date: 20100525
  Serious: No
  Sender: FDA-Public Use
  Company Number: US-ALEXION-A200900440

PATIENT
  Sex: Male

DRUGS (10)
  1. SOLIRIS [Suspect]
     Indication: PAROXYSMAL NOCTURNAL HAEMOGLOBINURIA
     Dosage: 600 MG, QW X4
     Route: 042
     Dates: start: 20090318, end: 20090408
  2. SOLIRIS [Suspect]
     Dosage: 900 MG, Q2WK
     Route: 042
     Dates: start: 20090507
  3. LOTENSIN                           /00909102/ [Concomitant]
     Dosage: 40 MG, UNK
  4. DIOVAN                             /01319601/ [Concomitant]
     Dosage: 320 MG, UNK
     Route: 048
  5. FOLIC ACID [Concomitant]
     Dosage: 1 MG, UNK
  6. FUROSEMIDE [Concomitant]
     Dosage: 40 MG, QD, AM
     Route: 048
  7. METOPROLOL [Concomitant]
     Dosage: 100 MG, UNK
  8. NIFEDIAC CC [Concomitant]
     Dosage: 90 MG, UNK
  9. NORVASC [Concomitant]
     Route: 048
  10. POTASSIUM CHLORIDE [Concomitant]
     Dosage: 20 MEQ, QD

REACTIONS (10)
  - ABNORMAL DREAMS [None]
  - ARTHROPOD BITE [None]
  - BLOOD PRESSURE ABNORMAL [None]
  - DISEASE PROGRESSION [None]
  - FATIGUE [None]
  - INSOMNIA [None]
  - NASAL CONGESTION [None]
  - NIGHTMARE [None]
  - PANCYTOPENIA [None]
  - SOMNAMBULISM [None]
